FAERS Safety Report 8104562-2 (Version None)
Quarter: 2012Q1

REPORT INFORMATION
  Report Type: 
  Country: None (occurrence: None)
  Receive Date: 20120201
  Receipt Date: 20120130
  Transmission Date: 20120608
  Serious: Yes (Other)
  Sender: FDA-Public Use
  Company Number: JP-MERCK-1201USA04036

PATIENT
  Age: 64 Year
  Sex: Male

DRUGS (3)
  1. AMARYL [Concomitant]
     Route: 048
  2. JANUVIA [Suspect]
     Indication: DIABETES MELLITUS
     Route: 048
     Dates: start: 20111101
  3. METFORMIN HCL [Concomitant]
     Route: 048

REACTIONS (3)
  - BENIGN PROSTATIC HYPERPLASIA [None]
  - URINARY RETENTION [None]
  - CONSTIPATION [None]
